FAERS Safety Report 9370921 (Version 2)
Quarter: 2013Q3

REPORT INFORMATION
  Report Type: Spontaneous
  Country: US (occurrence: US)
  Receive Date: 20130627
  Receipt Date: 20130719
  Transmission Date: 20140515
  Serious: Yes (Death)
  Sender: FDA-Public Use
  Company Number: US-ROCHE-1241975

PATIENT
  Sex: 0

DRUGS (1)
  1. ROCEPHIN [Suspect]
     Indication: MENINGITIS
     Route: 065
     Dates: start: 2000

REACTIONS (1)
  - Death [Fatal]
